FAERS Safety Report 10507542 (Version 1)
Quarter: 2014Q3

REPORT INFORMATION
  Report Type: Spontaneous
  Country: US (occurrence: None)
  Receive Date: 20140915
  Receipt Date: 20140915
  Transmission Date: 20150326
  Serious: Yes (Other)
  Sender: FDA-Public Use
  Company Number: 2013-US-002139

PATIENT
  Age: 31 Year
  Sex: Female
  Weight: 43.1 kg

DRUGS (5)
  1. LORATADINE. [Concomitant]
     Active Substance: LORATADINE
  2. XYREM [Suspect]
     Active Substance: SODIUM OXYBATE
     Indication: HYPERSOMNIA
     Dates: start: 200808, end: 200808
  3. XYREM [Suspect]
     Active Substance: SODIUM OXYBATE
     Indication: SLEEP DISORDER
     Dates: start: 200808, end: 200808
  4. LEXAPRO [Suspect]
     Active Substance: ESCITALOPRAM OXALATE
     Indication: PRODUCT USED FOR UNKNOWN INDICATION
  5. XYREM [Suspect]
     Active Substance: SODIUM OXYBATE
     Indication: NARCOLEPSY
     Dates: start: 200808, end: 200808

REACTIONS (7)
  - Ovarian cyst ruptured [None]
  - Off label use [None]
  - Sedation [None]
  - Vomiting [None]
  - Depression [None]
  - Intentional product misuse [None]
  - Insomnia [None]

NARRATIVE: CASE EVENT DATE: 2009
